FAERS Safety Report 4393038-4 (Version None)
Quarter: 2004Q3

REPORT INFORMATION
  Report Type: 
  Country: None (occurrence: None)
  Receive Date: 20040708
  Receipt Date: 20040212
  Transmission Date: 20050211
  Serious: Yes (Other)
  Sender: FDA-Public Use
  Company Number: DE-ROCHE-358752

PATIENT
  Age: 62 Year
  Sex: Female

DRUGS (2)
  1. RIBAVIRIN [Suspect]
     Route: 048
     Dates: start: 20031104, end: 20031229
  2. PEG-INTERFERON ALFA 2A (RO 25-8310) [Concomitant]
     Route: 058
     Dates: start: 20031104, end: 20031229

REACTIONS (3)
  - BRONCHITIS [None]
  - DYSPNOEA [None]
  - TREMOR [None]
